FAERS Safety Report 6256151-2 (Version None)
Quarter: 2009Q3

REPORT INFORMATION
  Report Type: 
  Country: None (occurrence: None)
  Receive Date: 20090706
  Receipt Date: 20090623
  Transmission Date: 20100115
  Serious: Yes (Other)
  Sender: FDA-Public Use
  Company Number: PHHY2009US25420

PATIENT
  Age: 83 Year
  Sex: Female

DRUGS (3)
  1. CARBAMAZEPINE [Suspect]
     Indication: GRAND MAL CONVULSION
  2. PHENOBARBITAL [Concomitant]
     Indication: GRAND MAL CONVULSION
  3. MEPIVACAINE HCL [Concomitant]
     Indication: NERVE BLOCK
     Dosage: 50 ML

REACTIONS (2)
  - BRADYCARDIA [None]
  - MUSCLE TWITCHING [None]
